FAERS Safety Report 14940658 (Version 2)
Quarter: 2018Q3

REPORT INFORMATION
  Report Type: Report from Study
  Country: US (occurrence: US)
  Receive Date: 20180525
  Receipt Date: 20180702
  Transmission Date: 20181010
  Serious: Yes (Hospitalization)
  Sender: FDA-Public Use
  Company Number: US-ACTELION-A-US2016-140048

PATIENT
  Age: 86 Year
  Sex: Female
  Weight: 48.73 kg

DRUGS (4)
  1. OPSUMIT [Suspect]
     Active Substance: MACITENTAN
     Indication: PULMONARY ARTERIAL HYPERTENSION
     Dosage: 10 MG, QD
     Route: 048
     Dates: start: 20160620
  2. LETAIRIS [Concomitant]
     Active Substance: AMBRISENTAN
     Dosage: UNK
     Dates: end: 20180612
  3. COUMADIN [Concomitant]
     Active Substance: WARFARIN SODIUM
  4. AMOXICILLIN. [Suspect]
     Active Substance: AMOXICILLIN
     Indication: PRODUCT USED FOR UNKNOWN INDICATION
     Route: 065

REACTIONS (17)
  - Productive cough [Unknown]
  - Bronchitis [Unknown]
  - Dyspnoea [Unknown]
  - Sinusitis [Unknown]
  - Influenza [Unknown]
  - Viral infection [Not Recovered/Not Resolved]
  - Mitral valve disease [Unknown]
  - Mitral valve replacement [Unknown]
  - Somnolence [Unknown]
  - Eyelash injury [Unknown]
  - Diarrhoea [Unknown]
  - Eye infection [Unknown]
  - Respiratory tract infection [Not Recovered/Not Resolved]
  - Mitral valve incompetence [Unknown]
  - Weight decreased [Unknown]
  - Cardiac operation [Unknown]
  - Malaise [Unknown]

NARRATIVE: CASE EVENT DATE: 20160725
